FAERS Safety Report 4468026-X (Version None)
Quarter: 2004Q4

REPORT INFORMATION
  Report Type: 
  Country: None (occurrence: None)
  Receive Date: 20041004
  Receipt Date: 20041004
  Transmission Date: 20050328
  Serious: Yes (Other)
  Sender: FDA-Public Use
  Company Number: None

PATIENT
  Age: 55 Year
  Sex: Male
  Weight: 84.4 kg

DRUGS (8)
  1. TERAZOSIN HCL [Suspect]
  2. SODIUMN CHLORIDE 0.65 % SOLN NASAL SPRAY [Concomitant]
  3. LORATADINE [Concomitant]
  4. FLUVASTATIN NA [Concomitant]
  5. AZITHROMYCIN [Concomitant]
  6. ATENOLOL [Concomitant]
  7. BACITRACIN [Concomitant]
  8. OMEPRAZOLE [Concomitant]

REACTIONS (1)
  - HEADACHE [None]
